FAERS Safety Report 15574244 (Version 1)
Quarter: 2018Q4

REPORT INFORMATION
  Report Type: Spontaneous
  Country: NL (occurrence: NL)
  Receive Date: 20181101
  Receipt Date: 20181101
  Transmission Date: 20190205
  Serious: Yes (Congenital Anomaly)
  Sender: FDA-Public Use
  Company Number: NL-PURDUE PHARMA-GBR-2018-0060989

PATIENT
  Sex: Male
  Weight: 2 kg

DRUGS (2)
  1. FENTANYL. [Suspect]
     Active Substance: FENTANYL
     Indication: ABDOMINAL PAIN
     Dosage: 1 DF, QOD [STRENGHT 50 MCG PER UUR]
     Route: 065
  2. OXYCONTIN [Suspect]
     Active Substance: OXYCODONE HYDROCHLORIDE
     Indication: ABDOMINAL PAIN
     Dosage: 1 DF Q12H  [STRENGHT 5 MG]
     Route: 065

REACTIONS (3)
  - Drug withdrawal syndrome neonatal [Unknown]
  - Maternal exposure during pregnancy [Unknown]
  - Talipes [Unknown]
